FAERS Safety Report 14786312 (Version 2)
Quarter: 2018Q2

REPORT INFORMATION
  Report Type: Spontaneous
  Country: US (occurrence: US)
  Receive Date: 20180420
  Receipt Date: 20180502
  Transmission Date: 20180711
  Serious: Yes (Hospitalization, Other)
  Sender: FDA-Public Use
  Company Number: US-MIST-TIR-2018-0417

PATIENT
  Sex: Female
  Weight: 103.51 kg

DRUGS (9)
  1. TIROSINT [Suspect]
     Active Substance: LEVOTHYROXINE SODIUM
     Indication: AUTOIMMUNE THYROIDITIS
     Dosage: ONE 125MCG CAPSULE IN THE MORNING, ONE 13MCG CAPSULE AT 1PM, ONE 13MCG CAPSULE AT 6PM. ON ALTERNATIN
     Route: 048
     Dates: start: 2016
  2. VITAMIN E [Concomitant]
     Active Substance: .ALPHA.-TOCOPHEROL
     Indication: PRODUCT USED FOR UNKNOWN INDICATION
  3. OMEGA-3 ACIDS [Concomitant]
     Active Substance: OMEGA-3 FATTY ACIDS
     Indication: PRODUCT USED FOR UNKNOWN INDICATION
  4. TIROSINT [Suspect]
     Active Substance: LEVOTHYROXINE SODIUM
     Dosage: ONE 125MCG CAPSULE EVERY MORNING, TWO 13MCG CAPSULES AT 2PM, AND TWO 13MCG CAPSULES AT 6PM DAILY. ON
     Route: 048
     Dates: start: 201710
  5. MULTIVITAMIN [Concomitant]
     Active Substance: VITAMINS
     Indication: PRODUCT USED FOR UNKNOWN INDICATION
  6. VITAMIN D [Concomitant]
     Active Substance: CHOLECALCIFEROL
     Indication: PRODUCT USED FOR UNKNOWN INDICATION
  7. TIROSINT [Suspect]
     Active Substance: LEVOTHYROXINE SODIUM
     Dosage: ONE 125MCG CAPSULE EVERY MORNING, TWO 13MCG CAPSULES AT 2PM, AND TWO 13MCG CAPSULES AT 6PM DAILY. ON
     Route: 048
     Dates: start: 201710
  8. PERCOCET [Concomitant]
     Active Substance: ACETAMINOPHEN\OXYCODONE HYDROCHLORIDE
     Indication: PRODUCT USED FOR UNKNOWN INDICATION
  9. TIROSINT [Suspect]
     Active Substance: LEVOTHYROXINE SODIUM
     Indication: AUTOIMMUNE THYROIDITIS
     Dosage: ONE 125MCG CAPSULE IN THE MORNING, ONE 13MCG CAPSULE AT 1PM, ONE 13MCG CAPSULE AT 6PM. ON ALTERNATIN
     Route: 048
     Dates: start: 2016

REACTIONS (14)
  - Oropharyngeal pain [Unknown]
  - Lymphadenopathy [Unknown]
  - Rash [Not Recovered/Not Resolved]
  - Laryngitis [Unknown]
  - Weight increased [Unknown]
  - Swelling [Unknown]
  - Pharyngeal erythema [Unknown]
  - Hysterectomy [Unknown]
  - Hypoacusis [Unknown]
  - Myxoedema [Unknown]
  - Ear swelling [Unknown]
  - Pharyngeal oedema [Unknown]
  - Menorrhagia [Unknown]
  - Hypersensitivity [Unknown]

NARRATIVE: CASE EVENT DATE: 2017
